FAERS Safety Report 6832838-5 (Version None)
Quarter: 2010Q3

REPORT INFORMATION
  Report Type: 
  Country: None (occurrence: None)
  Receive Date: 20100712
  Receipt Date: 20070322
  Transmission Date: 20110219
  Serious: No
  Sender: FDA-Public Use
  Company Number: US-PFIZER INC-2007023419

PATIENT
  Sex: Male

DRUGS (4)
  1. CHANTIX [Suspect]
     Indication: SMOKING CESSATION THERAPY
     Dates: start: 20070301
  2. PROTONIX [Concomitant]
     Indication: GASTROOESOPHAGEAL REFLUX DISEASE
  3. NICOTINE [Concomitant]
     Indication: SMOKING CESSATION THERAPY
  4. NICORETTE [Concomitant]
     Indication: SMOKING CESSATION THERAPY

REACTIONS (1)
  - NAUSEA [None]
